FAERS Safety Report 5868821-6 (Version None)
Quarter: 2008Q3

REPORT INFORMATION
  Report Type: 
  Country: None (occurrence: None)
  Receive Date: 20080825
  Receipt Date: 20080815
  Transmission Date: 20090109
  Serious: Yes (Hospitalization)
  Sender: FDA-Public Use
  Company Number: WAES 0807USA04472

PATIENT
  Age: 81 Year
  Sex: Male
  Weight: 65.7716 kg

DRUGS (14)
  1. CAP VORINOSTAT UNK [Suspect]
     Indication: ACUTE MYELOID LEUKAEMIA
     Dosage: 400 MG DAILY PO
     Route: 048
     Dates: start: 20080331, end: 20080413
  2. CAP VORINOSTAT UNK [Suspect]
     Indication: ACUTE MYELOID LEUKAEMIA
     Dosage: 400 MG DAILY PO
     Route: 048
     Dates: start: 20080428, end: 20080511
  3. CAP VORINOSTAT UNK [Suspect]
     Indication: ACUTE MYELOID LEUKAEMIA
     Dosage: 400 MG DAILY PO
     Route: 048
     Dates: start: 20080605, end: 20080618
  4. DECITABINE 38.2 MG [Suspect]
     Indication: ACUTE MYELOID LEUKAEMIA
     Dosage: 38.2 MG DAILY IV
     Route: 042
     Dates: start: 20080303, end: 20080307
  5. DECITABINE 38.2 MG [Suspect]
     Indication: ACUTE MYELOID LEUKAEMIA
     Dosage: 38.2 MG DAILY IV
     Route: 042
     Dates: start: 20080331, end: 20080404
  6. DECITABINE 38.4 MG [Suspect]
     Indication: ACUTE MYELOID LEUKAEMIA
     Dosage: 38.4 MG DAILY IV
     Route: 042
     Dates: start: 20080428, end: 20080502
  7. DECITABINE 37.4 MG [Suspect]
     Indication: ACUTE MYELOID LEUKAEMIA
     Dosage: 37.4 MG DAILY IV
     Route: 042
     Dates: start: 20080605, end: 20080609
  8. DECITABINE UNK [Suspect]
     Indication: ACUTE MYELOID LEUKAEMIA
     Dosage: 36.8 MG DAILY IV
     Route: 042
     Dates: start: 20080717, end: 20080721
  9. ASACOL [Concomitant]
  10. COMPAZINE [Concomitant]
  11. PROTONIX [Concomitant]
  12. ZOCOR [Concomitant]
  13. ACYCLOVIR [Concomitant]
  14. VITAMINS UNSPECIFIED [Concomitant]

REACTIONS (17)
  - ATRIAL TACHYCARDIA [None]
  - CAROTID ARTERY STENOSIS [None]
  - DEHYDRATION [None]
  - DIVERTICULUM INTESTINAL [None]
  - EXTRADURAL HAEMATOMA [None]
  - FALL [None]
  - LOCALISED OEDEMA [None]
  - MYOCARDIAL INFARCTION [None]
  - OESOPHAGITIS [None]
  - PNEUMONIA [None]
  - PULMONARY OEDEMA [None]
  - SIALOADENITIS [None]
  - SINUS TACHYCARDIA [None]
  - SOMNOLENCE [None]
  - URINARY RETENTION [None]
  - URINE OUTPUT DECREASED [None]
  - WITHDRAWAL SYNDROME [None]
